FAERS Safety Report 15180124 (Version 1)
Quarter: 2018Q3

REPORT INFORMATION
  Report Type: Spontaneous
  Country: US (occurrence: US)
  Receive Date: 20180723
  Receipt Date: 20180723
  Transmission Date: 20181010
  Serious: No
  Sender: FDA-Public Use
  Company Number: US-PFIZER INC-2018293836

PATIENT
  Sex: Female

DRUGS (2)
  1. GABAPENTIN. [Suspect]
     Active Substance: GABAPENTIN
     Indication: NERVE INJURY
     Dosage: 800 MG, UNK
  2. GABAPENTIN. [Suspect]
     Active Substance: GABAPENTIN
     Indication: SCOLIOSIS
     Dosage: 200 MG, 1X/DAY (2 CAPSULES A NIGHT BEFORE BED)
     Dates: start: 2013

REACTIONS (2)
  - Product use in unapproved indication [Unknown]
  - Fatigue [Unknown]
